FAERS Safety Report 6065832-5 (Version None)
Quarter: 2009Q1

REPORT INFORMATION
  Report Type: 
  Country: None (occurrence: None)
  Receive Date: 20090205
  Receipt Date: 20090128
  Transmission Date: 20090719
  Serious: Yes (Hospitalization)
  Sender: FDA-Public Use
  Company Number: US-JNJFOC-20090200001

PATIENT
  Sex: Female
  Weight: 65.77 kg

DRUGS (3)
  1. DURAGESIC-100 [Suspect]
     Indication: FIBROMYALGIA
     Route: 062
  2. DURAGESIC-100 [Suspect]
     Indication: ARTHRITIS
     Route: 062
  3. INTERFERON [Concomitant]
     Indication: HEPATITIS C
     Route: 030

REACTIONS (6)
  - HAEMOGLOBIN DECREASED [None]
  - HYPOAESTHESIA [None]
  - RASH PRURITIC [None]
  - RED BLOOD CELL COUNT DECREASED [None]
  - SCAR [None]
  - WHITE BLOOD CELL COUNT DECREASED [None]
